FAERS Safety Report 9361410 (Version 2)
Quarter: 2013Q3

REPORT INFORMATION
  Report Type: Report from Study
  Country: SE (occurrence: SE)
  Receive Date: 20130621
  Receipt Date: 20130711
  Transmission Date: 20140515
  Serious: Yes (Hospitalization, Other)
  Sender: FDA-Public Use
  Company Number: SE-ABBOTT-13P-150-1105601-00

PATIENT
  Age: 53 Year
  Sex: Female

DRUGS (11)
  1. HUMIRA [Suspect]
     Indication: CROHN^S DISEASE
     Dosage: BASELINE
     Route: 058
     Dates: start: 20080521, end: 20080521
  2. HUMIRA [Suspect]
     Dosage: WEEK 2
     Route: 058
  3. HUMIRA [Suspect]
     Route: 058
     Dates: end: 20130222
  4. HUMIRA [Suspect]
     Route: 058
     Dates: start: 20130424
  5. SUMATRIPTAN [Concomitant]
     Indication: MIGRAINE
     Dates: start: 2000
  6. IBUPROFEN [Concomitant]
     Indication: ABDOMINAL PAIN
  7. VITAMIN B COMPLEX [Concomitant]
     Indication: VITAMIN B12
     Dates: start: 1999
  8. CITALOPRAM [Concomitant]
     Indication: DEPRESSION
     Dates: start: 20090705
  9. HYDROCHLOROTHIAZIDE [Concomitant]
     Indication: DIURETIC THERAPY
     Dates: start: 20081209, end: 20090119
  10. PREDNISONE [Concomitant]
     Indication: INFLAMMATION
     Dosage: REDUCED DOSE WITH 5 MG EVERY WEEK UNTIL 0
     Dates: start: 20080131, end: 20080508
  11. AZATHIORRINE [Concomitant]
     Indication: IMMUNOSUPPRESSION
     Dates: start: 20080131, end: 20100420

REACTIONS (1)
  - Sepsis [Recovered/Resolved]
